FAERS Safety Report 18543812 (Version 5)
Quarter: 2022Q1

REPORT INFORMATION
  Report Type: Report from Study
  Country: US (occurrence: US)
  Receive Date: 20201125
  Receipt Date: 20220121
  Transmission Date: 20220423
  Serious: Yes (Other)
  Sender: FDA-Public Use
  Company Number: US-BOEHRINGERINGELHEIM-2019-BI-104556

PATIENT
  Age: 75 Year
  Sex: Male

DRUGS (3)
  1. OFEV [Suspect]
     Active Substance: NINTEDANIB
     Indication: Idiopathic pulmonary fibrosis
     Route: 048
     Dates: start: 20180620
  2. OFEV [Suspect]
     Active Substance: NINTEDANIB
     Dosage: TAKE 1 CAPSULE BY MOUTH EVERY 12 HOURS WITH FOOD
     Route: 048
     Dates: start: 20180624, end: 20211020
  3. OFEV [Suspect]
     Active Substance: NINTEDANIB

REACTIONS (28)
  - Pulmonary mass [Not Recovered/Not Resolved]
  - Dizziness [Not Recovered/Not Resolved]
  - Abdominal discomfort [Recovering/Resolving]
  - Diarrhoea [Recovering/Resolving]
  - Loss of personal independence in daily activities [Recovering/Resolving]
  - Cough [Recovering/Resolving]
  - Abdominal pain upper [Not Recovered/Not Resolved]
  - Hypotension [Not Recovered/Not Resolved]
  - Lung diffusion test decreased [Not Recovered/Not Resolved]
  - Pulmonary function test decreased [Not Recovered/Not Resolved]
  - Gastric disorder [Recovered/Resolved]
  - Productive cough [Not Recovered/Not Resolved]
  - Back pain [Unknown]
  - Nausea [Not Recovered/Not Resolved]
  - Vomiting [Not Recovered/Not Resolved]
  - Dry mouth [Not Recovered/Not Resolved]
  - Fatigue [Not Recovered/Not Resolved]
  - Muscle spasms [Not Recovered/Not Resolved]
  - Taste disorder [Not Recovered/Not Resolved]
  - Arthralgia [Not Recovered/Not Resolved]
  - Chronic obstructive pulmonary disease [Unknown]
  - Dyspnoea [Not Recovered/Not Resolved]
  - Rhinorrhoea [Not Recovered/Not Resolved]
  - Pain [Not Recovered/Not Resolved]
  - Headache [Not Recovered/Not Resolved]
  - Panic attack [Not Recovered/Not Resolved]
  - Anxiety [Not Recovered/Not Resolved]
  - Depression [Not Recovered/Not Resolved]

NARRATIVE: CASE EVENT DATE: 20180624
